FAERS Safety Report 10188267 (Version 2)
Quarter: 2014Q3

REPORT INFORMATION
  Report Type: Spontaneous
  Country: IT (occurrence: None)
  Receive Date: 20140520
  Receipt Date: 20140806
  Transmission Date: 20150326
  Serious: Yes (Hospitalization)
  Sender: FDA-Public Use
  Company Number: AUR-APL-2014-05762

PATIENT
  Age: 71 Year
  Sex: Female

DRUGS (2)
  1. AMOXICILLIN (AMOXICILLIN) [Suspect]
     Active Substance: AMOXICILLIN
     Indication: PRODUCT USED FOR UNKNOWN INDICATION
     Dosage: 1 DOSAGE FORMS, TOTAL,
     Route: 048
     Dates: start: 20140430, end: 20140430
  2. ASPIRIN. [Concomitant]
     Active Substance: ASPIRIN

REACTIONS (1)
  - Erythema [None]

NARRATIVE: CASE EVENT DATE: 20140430
